FAERS Safety Report 21470087 (Version 1)
Quarter: 2022Q4

REPORT INFORMATION
  Report Type: Other
  Country: CA (occurrence: None)
  Receive Date: 20221018
  Receipt Date: 20221018
  Transmission Date: 20230113
  Serious: Yes (Hospitalization)
  Sender: FDA-Public Use
  Company Number: CA-ROCHE-3198904

PATIENT
  Sex: Female

DRUGS (1)
  1. OCREVUS [Suspect]
     Active Substance: OCRELIZUMAB
     Indication: Relapsing-remitting multiple sclerosis
     Dosage: 600 MG EVERY 6 MONTH
     Route: 042
     Dates: start: 20210127

REACTIONS (5)
  - COVID-19 [Recovered/Resolved]
  - Balance disorder [Not Recovered/Not Resolved]
  - Dust allergy [Not Recovered/Not Resolved]
  - Blood glucose decreased [Unknown]
  - Allergy to animal [Not Recovered/Not Resolved]
